FAERS Safety Report 18734577 (Version 1)
Quarter: 2021Q1

REPORT INFORMATION
  Report Type: Spontaneous
  Country: US (occurrence: US)
  Receive Date: 20210112
  Receipt Date: 20210112
  Transmission Date: 20210419
  Serious: Yes (Disabling, Other)
  Sender: FDA-Public Use
  Company Number: None

PATIENT
  Age: 40 Year
  Sex: Male
  Weight: 65.25 kg

DRUGS (3)
  1. CLONAZEPAM. [Suspect]
     Active Substance: CLONAZEPAM
     Indication: PANIC DISORDER
     Dates: start: 20070927, end: 20210112
  2. CLONAZEPAM. [Suspect]
     Active Substance: CLONAZEPAM
     Indication: GENERALISED ANXIETY DISORDER
     Dates: start: 20070927, end: 20210112
  3. FISH OIL [Concomitant]
     Active Substance: FISH OIL

REACTIONS (7)
  - Palpitations [None]
  - Tremor [None]
  - Tachycardia [None]
  - Impaired self-care [None]
  - Anxiety [None]
  - Heart rate irregular [None]
  - Akathisia [None]

NARRATIVE: CASE EVENT DATE: 20190204
